FAERS Safety Report 21641442 (Version 1)
Quarter: 2022Q4

REPORT INFORMATION
  Report Type: Spontaneous
  Country: CN (occurrence: CN)
  Receive Date: 20221125
  Receipt Date: 20221125
  Transmission Date: 20230112
  Serious: Yes (Other)
  Sender: FDA-Public Use
  Company Number: CN-AstraZeneca-2022A385692

PATIENT

DRUGS (3)
  1. GOSERELIN [Suspect]
     Active Substance: GOSERELIN
     Indication: Colon cancer
     Dosage: 3.6 MILLIGRAM, BID
     Route: 058
     Dates: start: 20221021, end: 20221021
  2. ZOLADEX [Suspect]
     Active Substance: GOSERELIN ACETATE
     Indication: Colon cancer
     Dosage: UNK
     Route: 065
  3. BICALUTAMIDE [Suspect]
     Active Substance: BICALUTAMIDE
     Indication: Colon cancer
     Dosage: 50 MILLIGRAM, QD
     Route: 048
     Dates: start: 20221021, end: 20221024

REACTIONS (1)
  - Thyroid disorder [Unknown]

NARRATIVE: CASE EVENT DATE: 20221109
